FAERS Safety Report 10159777 (Version 1)
Quarter: 2014Q2

REPORT INFORMATION
  Report Type: Spontaneous
  Country: IN (occurrence: None)
  Receive Date: 20140506
  Receipt Date: 20140506
  Transmission Date: 20141212
  Serious: Yes (Hospitalization)
  Sender: FDA-Public Use
  Company Number: IMP_07625_2014

PATIENT
  Age: 32 Year
  Sex: Male

DRUGS (4)
  1. DIGOXIN [Suspect]
     Indication: PRODUCT USED FOR UNKNOWN INDICATION
     Dosage: NOT THE PRESCRIBED THE AMOUNT
     Route: 048
  2. PROPANOLOL [Suspect]
     Indication: PRODUCT USED FOR UNKNOWN INDICATION
     Dosage: NOT THE PRESCRIVED AMOUNT
     Route: 048
  3. INSULIN REGULAR HM [Suspect]
     Indication: TYPE 1 DIABETES MELLITUS
     Dosage: 1600 UNITS [NOT THE PRESCRIBED AMOUNT]
     Route: 058
  4. INSULIN GLARGINE [Concomitant]

REACTIONS (8)
  - Bradycardia [None]
  - Hypoglycaemia [None]
  - Toxicity to various agents [None]
  - Intentional overdose [None]
  - Overdose [None]
  - Exposure via ingestion [None]
  - Suicide attempt [None]
  - Exposure via blood [None]
